FAERS Safety Report 6795593-3 (Version None)
Quarter: 2010Q2

REPORT INFORMATION
  Report Type: 
  Country: None (occurrence: None)
  Receive Date: 20100622
  Receipt Date: 20100609
  Transmission Date: 20101027
  Serious: Yes (Other)
  Sender: FDA-Public Use
  Company Number: 220001M09KOR

PATIENT
  Age: 3 Year
  Sex: Female

DRUGS (4)
  1. SAIZEN [Suspect]
     Indication: HYPOPITUITARISM
     Dosage: 0.5 MG, 7 IN 1 WK, SUBCUTANEOUS
     Route: 058
     Dates: start: 20050616, end: 20060825
  2. SAIZEN [Suspect]
     Indication: HYPOPITUITARISM
     Dosage: 0.5 MG, 7 IN 1 WK, SUBCUTANEOUS
     Route: 058
     Dates: start: 20070507
  3. LEVOTHYROXINE SODIUM [Concomitant]
  4. HYDROCORTONE [Concomitant]

REACTIONS (2)
  - CONVULSION [None]
  - HYPOTONIA [None]
